FAERS Safety Report 8805947 (Version 1)
Quarter: 2012Q4

REPORT INFORMATION
  Report Type: Spontaneous
  Country: US (occurrence: None)
  Receive Date: 20120919
  Receipt Date: 20120919
  Transmission Date: 20130627
  Serious: Yes (Disabling)
  Sender: FDA-Public Use
  Company Number: None

PATIENT
  Age: 53 Year
  Sex: Male
  Weight: 90.72 kg

DRUGS (1)
  1. LEVITRA 10 MG FILM-COATED TABLETS [Suspect]
     Dates: start: 20100404, end: 20120510

REACTIONS (1)
  - Deafness [None]
